FAERS Safety Report 4664244-6 (Version None)
Quarter: 2005Q2

REPORT INFORMATION
  Report Type: 
  Country: None (occurrence: None)
  Receive Date: 20050516
  Receipt Date: 20050510
  Transmission Date: 20051028
  Serious: Yes (Hospitalization, Other)
  Sender: FDA-Public Use
  Company Number: TPA2004A00968

PATIENT
  Age: 58 Year
  Sex: Male
  Weight: 98.9 kg

DRUGS (17)
  1. PIOGLITAZONE HCL [Suspect]
     Indication: GLUCOSE TOLERANCE IMPAIRED
     Dosage: 1 IN 1 D, PER ORAL
     Route: 048
     Dates: start: 20040331, end: 20040804
  2. PIOGLITAZONE HCL [Suspect]
     Indication: PROPHYLAXIS
     Dosage: 1 IN 1 D, PER ORAL
     Route: 048
     Dates: start: 20040331, end: 20040804
  3. VICODIN [Suspect]
     Indication: PAIN
     Dosage: 1 TO 2 TABS, Q 4-6 HRS, PER ORAL
     Route: 048
  4. SIMVASTATIN [Concomitant]
  5. TRAZODONE HCL (TRAZODONE HYDROCHLORIDE) [Concomitant]
  6. INDOMETHACIN [Concomitant]
  7. PERCOCET [Concomitant]
  8. AMITRIPTYLINE HCL (AMITRIPTYLINE) [Concomitant]
  9. IBUPROFEN [Concomitant]
  10. ACETYLSALICYLIC ACID SRT [Concomitant]
  11. TYLENOL PM (TYLENOL PM) (TABLETS) [Concomitant]
  12. CITALOPRAM HYDROBROMIDE [Concomitant]
  13. SAW PALMETTO (SERENOA REPENS) [Concomitant]
  14. HYDROCHLOROTHIAZIDE [Concomitant]
  15. VITALZYM (ALL OTHER NON-THERAPEUTIC PRODUCTS) (TABLETS) [Concomitant]
  16. PROPOXYPHENE N100/APAP ( APOREX) (TABLETS) [Concomitant]
  17. CLONAZEPAM [Concomitant]

REACTIONS (26)
  - ABDOMINAL PAIN [None]
  - ATELECTASIS [None]
  - BLOOD AMYLASE INCREASED [None]
  - BLOOD GLUCOSE DECREASED [None]
  - BLOOD POTASSIUM DECREASED [None]
  - BLOOD PRESSURE DIASTOLIC INCREASED [None]
  - FEELING ABNORMAL [None]
  - HAEMATOMA [None]
  - HAEMOGLOBIN DECREASED [None]
  - INCONTINENCE [None]
  - INTERVERTEBRAL DISC DEGENERATION [None]
  - INTUBATION [None]
  - LUNG INFILTRATION [None]
  - MICTURITION URGENCY [None]
  - MULTIPLE SCLEROSIS [None]
  - NERVOUS SYSTEM DISORDER [None]
  - NOCTURIA [None]
  - NUCLEAR MAGNETIC RESONANCE IMAGING BRAIN ABNORMAL [None]
  - PAIN [None]
  - PAIN IN EXTREMITY [None]
  - PANCREATECTOMY [None]
  - PANCREATIC LEAK [None]
  - PNEUMONIA ASPIRATION [None]
  - POST PROCEDURAL COMPLICATION [None]
  - RENAL CELL CARCINOMA STAGE II [None]
  - SPINAL OSTEOARTHRITIS [None]
